FAERS Safety Report 7801913-0 (Version None)
Quarter: 2011Q4

REPORT INFORMATION
  Report Type: 
  Country: None (occurrence: None)
  Receive Date: 20111007
  Receipt Date: 20110923
  Transmission Date: 20120403
  Serious: Yes (Death, Hospitalization)
  Sender: FDA-Public Use
  Company Number: GB-MYLANLABS-2011S1015770

PATIENT
  Age: 46 Year
  Sex: Female

DRUGS (2)
  1. MYCOPHENOLATE MOFETIL [Suspect]
     Indication: HEART TRANSPLANT
  2. CYCLOSPORINE [Suspect]
     Indication: HEART TRANSPLANT

REACTIONS (7)
  - ADENOVIRUS INFECTION [None]
  - INTERNATIONAL NORMALISED RATIO INCREASED [None]
  - ENCEPHALOPATHY [None]
  - ACUTE HEPATIC FAILURE [None]
  - HYPOGLYCAEMIA [None]
  - HAEMODYNAMIC INSTABILITY [None]
  - RENAL IMPAIRMENT [None]
